FAERS Safety Report 8264523-X (Version None)
Quarter: 2012Q2

REPORT INFORMATION
  Report Type: 
  Country: None (occurrence: None)
  Receive Date: 20120406
  Receipt Date: 20120402
  Transmission Date: 20120825
  Serious: Yes (Death, Hospitalization)
  Sender: FDA-Public Use
  Company Number: GR-US-EMD SERONO, INC.-7123420

PATIENT
  Age: 47 Year
  Sex: Male

DRUGS (2)
  1. REBIF [Suspect]
     Indication: MULTIPLE SCLEROSIS
     Dates: start: 20090701, end: 20120118
  2. ALBUTEROL [Concomitant]
     Indication: PRODUCT USED FOR UNKNOWN INDICATION
     Route: 055
     Dates: start: 20120118, end: 20120209

REACTIONS (2)
  - GASTRIC PERFORATION [None]
  - SEPSIS [None]
